FAERS Safety Report 25465615 (Version 1)
Quarter: 2025Q2

REPORT INFORMATION
  Report Type: Report from Study
  Country: US (occurrence: US)
  Receive Date: 20250623
  Receipt Date: 20250623
  Transmission Date: 20250717
  Serious: Yes (Other)
  Sender: ACADIA PHARMACEUTICALS
  Company Number: US-ACADIA PHARMACEUTICALS INC.-ACA-2025-PIM-007323

PATIENT
  Sex: Male

DRUGS (31)
  1. NUPLAZID [Suspect]
     Active Substance: PIMAVANSERIN TARTRATE
     Indication: Parkinson^s disease
     Dosage: 34 MILLIGRAM, QD
     Route: 048
  2. BUMETANIDE [Concomitant]
     Active Substance: BUMETANIDE
  3. ALBUTEROL [Concomitant]
     Active Substance: ALBUTEROL
  4. OMEPRAZOLE [Concomitant]
     Active Substance: OMEPRAZOLE
  5. HYPROMELLOSE 2910 (4000 MPA.S) [Concomitant]
     Active Substance: HYPROMELLOSE 2910 (4000 MPA.S)
  6. ROPINIROLE [Concomitant]
     Active Substance: ROPINIROLE
  7. SENNOSIDES A AND B [Concomitant]
     Active Substance: SENNOSIDES A AND B
  8. TRAMADOL [Concomitant]
     Active Substance: TRAMADOL
  9. TYLENOL [Concomitant]
     Active Substance: ACETAMINOPHEN
  10. MYRBETRIQ [Concomitant]
     Active Substance: MIRABEGRON
  11. MINERALS\VITAMINS [Concomitant]
     Active Substance: MINERALS\VITAMINS
  12. TROSPIUM [Concomitant]
     Active Substance: TROSPIUM
  13. VITAMIN C [Concomitant]
     Active Substance: ASCORBIC ACID
  14. THIAMINE [Concomitant]
     Active Substance: THIAMINE
  15. IRON [Concomitant]
     Active Substance: IRON
  16. CLARITHROMYCIN [Concomitant]
     Active Substance: CLARITHROMYCIN
  17. KRILL OIL [Concomitant]
     Active Substance: DIETARY SUPPLEMENT\KRILL OIL
  18. ROSUVASTATIN [Concomitant]
     Active Substance: ROSUVASTATIN
  19. CARBIDOPA\LEVODOPA [Concomitant]
     Active Substance: CARBIDOPA\LEVODOPA
  20. OSTEO-BI-FLEX [Concomitant]
  21. VITAMIN B1 [Concomitant]
     Active Substance: THIAMINE HYDROCHLORIDE
  22. MELATONIN [Concomitant]
     Active Substance: MELATONIN
  23. XARELTO [Concomitant]
     Active Substance: RIVAROXABAN
  24. CELEBREX [Concomitant]
     Active Substance: CELECOXIB
  25. LYRICA [Concomitant]
     Active Substance: PREGABALIN
  26. CLONAZEPAM [Concomitant]
     Active Substance: CLONAZEPAM
  27. CLINDAMYCIN [Concomitant]
     Active Substance: CLINDAMYCIN
  28. COLACE [Concomitant]
     Active Substance: DOCUSATE SODIUM
  29. LISINOPRIL [Concomitant]
     Active Substance: LISINOPRIL
  30. ARMODAFINIL [Concomitant]
     Active Substance: ARMODAFINIL
  31. DULOXETINE [Concomitant]
     Active Substance: DULOXETINE

REACTIONS (2)
  - Hallucination [Unknown]
  - Cellulitis [Unknown]
